FAERS Safety Report 9948441 (Version 2)
Quarter: 2014Q1

REPORT INFORMATION
  Report Type: Report from Study
  Country: US (occurrence: US)
  Receive Date: 20140303
  Receipt Date: 20140303
  Transmission Date: 20141002
  Serious: Yes (Other)
  Sender: FDA-Public Use
  Company Number: US-ABBVIE-13P-163-1053898-00

PATIENT
  Age: 48 Year
  Sex: Female

DRUGS (22)
  1. HUMIRA [Suspect]
     Indication: PSORIASIS
     Dates: start: 200911, end: 201110
  2. HUMIRA [Suspect]
     Dates: start: 201210
  3. VITAMIN D [Concomitant]
     Indication: PRODUCT USED FOR UNKNOWN INDICATION
  4. VESICARE [Concomitant]
     Indication: INCONTINENCE
  5. PANTOPRAZOLE [Concomitant]
     Indication: DYSPEPSIA
  6. PRO-AIR [Concomitant]
     Indication: CHRONIC OBSTRUCTIVE PULMONARY DISEASE
     Dosage: TWO TO FOUR TIMES A DAY
  7. CALCIPOTRIENE [Concomitant]
     Indication: PSORIASIS
  8. CLOBETASOL [Concomitant]
     Indication: PSORIASIS
  9. HYDROCODONE [Concomitant]
     Indication: PAIN
     Dosage: 75/500 MG
  10. HYDROCODONE [Concomitant]
     Indication: INTERVERTEBRAL DISC PROTRUSION
  11. HYDROCODONE [Concomitant]
     Indication: SCIATICA
  12. SYMBICORT [Concomitant]
     Indication: CHRONIC OBSTRUCTIVE PULMONARY DISEASE
  13. CYCLOBENZAPRINE [Concomitant]
     Indication: SCIATICA
     Dosage: 10 MG DAILY
  14. IBUPROFEN [Concomitant]
     Indication: PSORIATIC ARTHROPATHY
  15. TRAZODONE [Concomitant]
     Indication: SLEEP DISORDER
     Dosage: 150 MG DAILY
  16. TRAZODONE [Concomitant]
     Indication: DEPRESSION
  17. BUPROPION [Concomitant]
     Indication: PRODUCT USED FOR UNKNOWN INDICATION
  18. SERTRALINE [Concomitant]
     Indication: DEPRESSION
     Dosage: 50 MG DAILY
  19. SEVERAL UNKNOWN MEDICATIONS [Concomitant]
     Indication: DEPRESSION
  20. METHOTREXATE [Concomitant]
     Indication: PSORIASIS
     Dosage: 6 PILLS WEEKLY
  21. FOLIC ACID [Concomitant]
     Indication: PRODUCT USED FOR UNKNOWN INDICATION
     Dates: start: 201301
  22. CARBAMAZEPINE [Concomitant]
     Indication: NEURALGIA
     Dates: start: 20130119

REACTIONS (8)
  - Cervix carcinoma [Recovered/Resolved]
  - Cervical dysplasia [Unknown]
  - Neuralgia [Unknown]
  - Psoriasis [Unknown]
  - Psoriasis [Unknown]
  - Pain [Unknown]
  - Drug ineffective [Recovered/Resolved]
  - Psoriasis [Recovered/Resolved]
